FAERS Safety Report 11890714 (Version 1)
Quarter: 2016Q1

REPORT INFORMATION
  Report Type: Report from Study
  Country: IN (occurrence: IN)
  Receive Date: 20160105
  Receipt Date: 20160105
  Transmission Date: 20160526
  Serious: Yes (Death, Other)
  Sender: FDA-Public Use
  Company Number: IN-ROCHE-1686732

PATIENT
  Age: 42 Year
  Sex: Male

DRUGS (9)
  1. ACTRAPID [Concomitant]
     Active Substance: INSULIN HUMAN
     Route: 065
     Dates: start: 20150114
  2. BACTRIM [Concomitant]
     Active Substance: SULFAMETHOXAZOLE\TRIMETHOPRIM
     Route: 048
     Dates: start: 20150114
  3. STAMLO [Concomitant]
     Active Substance: AMLODIPINE BESYLATE
     Route: 048
     Dates: start: 20150114
  4. CELLCEPT [Suspect]
     Active Substance: MYCOPHENOLATE MOFETIL\MYCOPHENOLATE MOFETIL HYDROCHLORIDE
     Indication: RENAL TRANSPLANT
     Route: 048
     Dates: start: 20150114
  5. OMNACORTIL [Concomitant]
     Active Substance: PREDNISOLONE
     Route: 048
     Dates: start: 20150114
  6. MIXTARD HUMAN 70/30 [Concomitant]
     Active Substance: INSULIN HUMAN
     Route: 065
     Dates: start: 20150114
  7. FAROPENEM [Concomitant]
     Active Substance: FAROPENEM
     Route: 048
     Dates: start: 20150114
  8. LIVOGEN (INDIA) [Concomitant]
     Route: 048
     Dates: start: 20150114
  9. TACROLIMUS. [Concomitant]
     Active Substance: TACROLIMUS
     Dosage: 2MG IN MORNING AND 1.5MG IN EVENING
     Route: 048
     Dates: start: 20150114

REACTIONS (3)
  - Chest pain [Unknown]
  - Death [Fatal]
  - Peripheral swelling [Unknown]

NARRATIVE: CASE EVENT DATE: 20151220
